FAERS Safety Report 9768741 (Version 2)
Quarter: 2014Q1

REPORT INFORMATION
  Report Type: Spontaneous
  Country: US (occurrence: US)
  Receive Date: 20131218
  Receipt Date: 20140129
  Transmission Date: 20141002
  Serious: No
  Sender: FDA-Public Use
  Company Number: US-BIOGENIDEC-2013BI119253

PATIENT
  Age: 29 Year
  Sex: Female

DRUGS (1)
  1. TYSABRI [Suspect]
     Indication: MULTIPLE SCLEROSIS
     Route: 042
     Dates: start: 20130211, end: 20131025

REACTIONS (6)
  - Cognitive disorder [Unknown]
  - Memory impairment [Unknown]
  - Aphasia [Unknown]
  - Vertigo [Unknown]
  - Poor venous access [Unknown]
  - Device issue [Unknown]
